FAERS Safety Report 17254048 (Version 1)
Quarter: 2020Q1

REPORT INFORMATION
  Report Type: Report from Study
  Country: US (occurrence: US)
  Receive Date: 20200109
  Receipt Date: 20200109
  Transmission Date: 20200409
  Serious: Yes (Other)
  Sender: FDA-Public Use
  Company Number: PHHO2019US000601

PATIENT
  Age: 64 Year
  Sex: Male
  Weight: 87 kg

DRUGS (39)
  1. BLINDED CGP 41251 [Suspect]
     Active Substance: MIDOSTAURIN
     Dosage: 50 MG, BID
     Route: 048
     Dates: start: 20190110
  2. COMPARATOR CYTARABINE [Suspect]
     Active Substance: CYTARABINE
     Indication: ACUTE MYELOID LEUKAEMIA
     Dosage: 420 MG, QD
     Route: 042
     Dates: start: 20181227
  3. COMPAZINE [Concomitant]
     Active Substance: PROCHLORPERAZINE MALEATE
     Indication: NAUSEA
     Dosage: UNK
     Route: 065
     Dates: start: 20181228, end: 20190116
  4. TYLENOL [Concomitant]
     Active Substance: ACETAMINOPHEN
     Dosage: UNK
     Route: 065
     Dates: start: 20190104, end: 20190105
  5. PANTOPRAZOLE [Concomitant]
     Active Substance: PANTOPRAZOLE
     Indication: GENERAL PHYSICAL CONDITION
     Dosage: UNK
     Route: 065
     Dates: start: 20190103, end: 20190124
  6. BLINDED NO TREATMENT RECEIVED [Suspect]
     Active Substance: INVESTIGATIONAL PRODUCT
     Dosage: 50 MG, BID
     Route: 048
     Dates: start: 20190110
  7. LIDODERM [Concomitant]
     Active Substance: LIDOCAINE
     Indication: PAIN IN EXTREMITY
     Dosage: UNK
     Route: 065
     Dates: start: 20190102, end: 20190110
  8. POSACONAZOLE [Concomitant]
     Active Substance: POSACONAZOLE
     Indication: GENERAL PHYSICAL CONDITION
     Dosage: UNK
     Route: 065
     Dates: start: 20181230, end: 20190117
  9. PROPOFOL (DIPRIVAN) [Concomitant]
     Indication: PRODUCT USED FOR UNKNOWN INDICATION
     Dosage: UNK
     Route: 065
     Dates: start: 20181226, end: 20181226
  10. ROCURPONIUM (ZEMURON) [Concomitant]
     Indication: PRODUCT USED FOR UNKNOWN INDICATION
     Dosage: UNK
     Route: 065
     Dates: start: 20181226, end: 20181226
  11. CRESTOR [Concomitant]
     Active Substance: ROSUVASTATIN CALCIUM
     Indication: HYPERLIPIDAEMIA
     Dosage: UNK
     Route: 065
     Dates: start: 20181227, end: 20190123
  12. COMPARATOR DAUNORUBICIN [Suspect]
     Active Substance: DAUNORUBICIN
     Indication: ACUTE MYELOID LEUKAEMIA
     Dosage: 50 MG, BID
     Route: 048
     Dates: start: 20181227, end: 20190107
  13. VANCOMYCIN (VANCOCIN) [Concomitant]
     Indication: BACTERAEMIA
     Dosage: UNK
     Route: 065
     Dates: start: 20190104, end: 20190118
  14. FENTANYL. [Concomitant]
     Active Substance: FENTANYL
     Indication: PRODUCT USED FOR UNKNOWN INDICATION
     Dosage: UNK
     Route: 065
     Dates: start: 20190108, end: 20190108
  15. MAGNESIUM SULFATE. [Concomitant]
     Active Substance: MAGNESIUM SULFATE
     Indication: GENERAL PHYSICAL CONDITION
     Dosage: UNK
     Route: 065
     Dates: start: 20190108, end: 20190210
  16. VERSED [Concomitant]
     Active Substance: MIDAZOLAM HYDROCHLORIDE
     Indication: PRODUCT USED FOR UNKNOWN INDICATION
     Dosage: UNK
     Route: 065
     Dates: start: 20190108, end: 20190108
  17. BLINDED NO TREATMENT RECEIVED [Suspect]
     Active Substance: INVESTIGATIONAL PRODUCT
     Indication: ACUTE MYELOID LEUKAEMIA
     Dosage: 50 MG, BID
     Route: 048
     Dates: start: 20190103, end: 20190107
  18. LEVAQUIN [Concomitant]
     Active Substance: LEVOFLOXACIN
     Indication: GENERAL PHYSICAL CONDITION
     Dosage: UNK
     Route: 065
     Dates: start: 20190102, end: 20190212
  19. ZOFRAN [Concomitant]
     Active Substance: ONDANSETRON HYDROCHLORIDE
     Indication: NAUSEA
     Dosage: UNK
     Route: 065
     Dates: start: 20181226, end: 20181226
  20. CEFEPIME (MAXIPIME) [Concomitant]
     Indication: GENERAL PHYSICAL CONDITION
     Dosage: UNK
     Route: 065
     Dates: start: 20190104, end: 20190107
  21. LOPERAMIDE (IMODIUM) [Concomitant]
     Indication: DIARRHOEA
     Dosage: UNK
     Route: 065
     Dates: start: 20190109, end: 20190109
  22. TYLENOL [Concomitant]
     Active Substance: ACETAMINOPHEN
     Indication: FEBRILE NEUTROPENIA
     Dosage: UNK
     Route: 065
     Dates: start: 20181127, end: 20190101
  23. ACYCLOVIR (ZOVIRAX) [Concomitant]
     Indication: GENERAL PHYSICAL CONDITION
     Dosage: UNK
     Route: 065
     Dates: start: 20181223, end: 20190319
  24. LIPITOR [Concomitant]
     Active Substance: ATORVASTATIN CALCIUM
     Indication: HYPERLIPIDAEMIA
     Dosage: UNK
     Route: 065
     Dates: start: 20181223
  25. HYDROCODONE-ACETAMINOPHEN (NORCO) [Concomitant]
     Indication: PAIN
     Dosage: UNK
     Route: 065
     Dates: start: 20190107, end: 20190120
  26. BLINDED PLACEBO [Suspect]
     Active Substance: INVESTIGATIONAL PRODUCT
     Indication: ACUTE MYELOID LEUKAEMIA
     Dosage: 50 MG, BID
     Route: 048
     Dates: start: 20190103, end: 20190107
  27. MAG-OX [Concomitant]
     Active Substance: MAGNESIUM OXIDE
     Indication: GENERAL PHYSICAL CONDITION
     Dosage: UNK
     Route: 065
     Dates: start: 20190104, end: 20190114
  28. K-DUR [Concomitant]
     Active Substance: POTASSIUM CHLORIDE
     Indication: GENERAL PHYSICAL CONDITION
     Dosage: UNK
     Route: 065
     Dates: start: 20181223
  29. HYDROCORTICONE [Concomitant]
     Active Substance: HYDROCORTISONE
     Indication: RASH
     Dosage: UNK
     Route: 065
     Dates: start: 20190104, end: 20190113
  30. POTASSIUM CHLORIDE. [Concomitant]
     Active Substance: POTASSIUM CHLORIDE
     Indication: GENERAL PHYSICAL CONDITION
     Dosage: UNK
     Route: 065
     Dates: start: 20181224, end: 20190427
  31. PROCHLORPERAZINE. [Concomitant]
     Active Substance: PROCHLORPERAZINE
     Indication: NAUSEA
     Dosage: UNK
     Route: 065
     Dates: start: 20181227, end: 20190211
  32. BLINDED CGP 41251 [Suspect]
     Active Substance: MIDOSTAURIN
     Indication: ACUTE MYELOID LEUKAEMIA
     Dosage: 50 MG, BID
     Route: 048
     Dates: start: 20190103, end: 20190107
  33. BLINDED PLACEBO [Suspect]
     Active Substance: INVESTIGATIONAL PRODUCT
     Dosage: 50 MG, BID
     Route: 048
     Dates: start: 20190110
  34. MELATONIN [Concomitant]
     Active Substance: MELATONIN
     Indication: INSOMNIA
     Dosage: UNK
     Route: 065
     Dates: start: 20190106, end: 20190107
  35. CEFEPIME (MAXIPIME) [Concomitant]
     Indication: BACTERAEMIA
     Dosage: UNK
     Route: 065
     Dates: start: 20181223, end: 20190101
  36. ACTIVASE [Concomitant]
     Active Substance: ALTEPLASE
     Indication: PRODUCT USED FOR UNKNOWN INDICATION
     Dosage: UNK
     Route: 065
     Dates: start: 20181226, end: 20181226
  37. PHYTONADIONE (MEPHYTON) [Concomitant]
     Indication: GENERAL PHYSICAL CONDITION
     Dosage: UNK
     Route: 065
     Dates: start: 20181223, end: 20190226
  38. ZOFRAN [Concomitant]
     Active Substance: ONDANSETRON HYDROCHLORIDE
     Dosage: UNK
     Route: 065
     Dates: start: 20181227, end: 20190212
  39. ZYLOPRIM [Concomitant]
     Active Substance: ALLOPURINOL
     Indication: GENERAL PHYSICAL CONDITION
     Dosage: UNK
     Route: 065
     Dates: start: 20181223, end: 20190429

REACTIONS (1)
  - Atrial fibrillation [Not Recovered/Not Resolved]

NARRATIVE: CASE EVENT DATE: 20190106
